FAERS Safety Report 5811789-9 (Version None)
Quarter: 2008Q3

REPORT INFORMATION
  Report Type: 
  Country: None (occurrence: None)
  Receive Date: 20080714
  Receipt Date: 20080703
  Transmission Date: 20090109
  Serious: Yes (Other)
  Sender: FDA-Public Use
  Company Number: 2008-02452

PATIENT
  Age: 68 Year
  Sex: Female

DRUGS (3)
  1. VELCADE [Suspect]
     Indication: DRUG USE FOR UNKNOWN INDICATION
     Dosage: 2 MG, INTRAVENOUS
     Route: 042
  2. ACYCLOVIR [Concomitant]
  3. BACTRIM [Concomitant]

REACTIONS (5)
  - HEPATIC NEOPLASM [None]
  - HEPATOMEGALY [None]
  - LIVER FUNCTION TEST ABNORMAL [None]
  - LIVER SCAN ABNORMAL [None]
  - THROMBOCYTOPENIA [None]
